FAERS Safety Report 6862755-6 (Version None)
Quarter: 2010Q2

REPORT INFORMATION
  Report Type: 
  Country: None (occurrence: None)
  Receive Date: 20100528
  Receipt Date: 20100415
  Transmission Date: 20101027
  Serious: No
  Sender: FDA-Public Use
  Company Number: 2010048559

PATIENT
  Age: 60 Year
  Sex: Female
  Weight: 140.6 kg

DRUGS (12)
  1. TOVIAZ [Suspect]
     Indication: HYPERTONIC BLADDER
     Dosage: 4 MG, DAILY
     Dates: start: 20100409
  2. METOPROLOL SUCCINATE [Concomitant]
  3. CYMBALTA [Concomitant]
  4. ROPINIROLE [Concomitant]
  5. LYRICA [Concomitant]
  6. SYNTHROID [Concomitant]
  7. NEXIUM [Concomitant]
  8. NORTRIPTYLINE HCL [Concomitant]
  9. LISINOPRIL [Concomitant]
  10. HYDROXYCHLOROQUINE SULFATE [Concomitant]
  11. SULFASALAZINE [Concomitant]
  12. LORTAB [Concomitant]

REACTIONS (3)
  - CONFUSIONAL STATE [None]
  - DRUG INTERACTION [None]
  - FEELING ABNORMAL [None]
